FAERS Safety Report 18884412 (Version 1)
Quarter: 2021Q1

REPORT INFORMATION
  Report Type: Spontaneous
  Country: FR (occurrence: FR)
  Receive Date: 20210211
  Receipt Date: 20210211
  Transmission Date: 20210420
  Serious: Yes (Other)
  Sender: FDA-Public Use
  Company Number: FR-SUN PHARMACEUTICAL INDUSTRIES LTD-2021RR-280427

PATIENT
  Age: 42 Year
  Sex: Female

DRUGS (3)
  1. MABELIO [Suspect]
     Active Substance: CEFTOBIPROLE
     Indication: PRODUCT USED FOR UNKNOWN INDICATION
     Dosage: ()
     Route: 065
     Dates: start: 20201120
  2. CITALOPRAM [Suspect]
     Active Substance: CITALOPRAM HYDROBROMIDE
     Indication: PRODUCT USED FOR UNKNOWN INDICATION
     Dosage: 10 MILLIGRAM, QD
     Route: 065
     Dates: start: 20201210
  3. DAPTOMYCINE [Suspect]
     Active Substance: DAPTOMYCIN
     Indication: INFECTION
     Dosage: 850 MILLIGRAM, QD
     Route: 042
     Dates: start: 20201120

REACTIONS (1)
  - Neutropenia [Not Recovered/Not Resolved]

NARRATIVE: CASE EVENT DATE: 20201214
